FAERS Safety Report 7382009-1 (Version None)
Quarter: 2011Q1

REPORT INFORMATION
  Report Type: 
  Country: None (occurrence: None)
  Receive Date: 20110329
  Receipt Date: 20110324
  Transmission Date: 20110831
  Serious: Yes (Hospitalization, Other)
  Sender: FDA-Public Use
  Company Number: US-PFIZER INC-2011009821

PATIENT
  Sex: Male

DRUGS (3)
  1. TRAMADOL [Concomitant]
     Indication: ABDOMINAL PAIN
     Dosage: UNK
     Dates: start: 20060101, end: 20100101
  2. TRAMADOL [Concomitant]
     Indication: ARTHRALGIA
  3. CHANTIX [Suspect]
     Indication: SMOKING CESSATION THERAPY
     Dosage: 1 MG, UNK
     Dates: start: 20080401, end: 20080501

REACTIONS (6)
  - DEPRESSION [None]
  - SUICIDE ATTEMPT [None]
  - AGGRESSION [None]
  - SUICIDAL IDEATION [None]
  - ANGER [None]
  - INTENTIONAL OVERDOSE [None]
